FAERS Safety Report 8917873 (Version 8)
Quarter: 2013Q2

REPORT INFORMATION
  Report Type: Spontaneous
  Country: GB (occurrence: GB)
  Receive Date: 20121120
  Receipt Date: 20130503
  Transmission Date: 20140414
  Serious: Yes (Life-Threatening, Hospitalization)
  Sender: FDA-Public Use
  Company Number: GB-US-EMD SERONO, INC.-7166787

PATIENT
  Age: 36 Year
  Sex: Female

DRUGS (6)
  1. REBIF [Suspect]
     Indication: MULTIPLE SCLEROSIS
     Route: 058
     Dates: start: 19990825, end: 20120317
  2. FEXOFENADINE [Concomitant]
     Indication: EPILEPSY
     Route: 048
  3. SOLIFENACIN [Concomitant]
     Indication: EPILEPSY
     Route: 048
  4. OMEPRAZOLE [Concomitant]
     Indication: EPILEPSY
     Route: 048
  5. AMITRIPTYLINE [Concomitant]
     Indication: EPILEPSY
     Route: 048
  6. VALPROATE SODIUM [Concomitant]
     Indication: EPILEPSY
     Route: 048

REACTIONS (1)
  - Haemolytic uraemic syndrome [Recovered/Resolved]
